FAERS Safety Report 8767394 (Version 3)
Quarter: 2012Q4

REPORT INFORMATION
  Report Type: 
  Country: JP (occurrence: JP)
  Receive Date: 20120830
  Receipt Date: 20120912
  Transmission Date: 20130627
  Serious: Yes (Other)
  Sender: FDA-Public Use
  Company Number: JP-PFIZER INC-2012209471

PATIENT
  Age: 58 Year
  Sex: Male
  Weight: 63 kg

DRUGS (11)
  1. VFEND [Suspect]
     Indication: PNEUMONIA FUNGAL
     Dosage: 500 mg, 1x/day
     Route: 048
     Dates: start: 20110727, end: 20110818
  2. KETAMINE [Interacting]
     Dosage: 4 mg/hour
     Route: 042
     Dates: start: 20110808, end: 20110809
  3. KETAMINE [Interacting]
     Dosage: 2 mg, UNK
     Route: 042
     Dates: start: 20110810, end: 20110810
  4. OXYCODONE [Concomitant]
     Indication: PAIN
     Dosage: UNK
     Dates: start: 201107
  5. OXYCODONE [Concomitant]
     Dosage: 115 mg, 1x/day
     Dates: start: 201108, end: 201108
  6. OXYCODONE [Concomitant]
     Dosage: 79 mg, 1x/day
     Dates: start: 20110809, end: 201108
  7. OXYCODONE [Concomitant]
     Dosage: 3.3 mg, UNK
     Dates: start: 20110810, end: 20110810
  8. MEROPENEM [Concomitant]
     Indication: PNEUMONITIS
     Dosage: 2 g, 1x/day
     Dates: start: 201107, end: 20110802
  9. MEROPENEM [Concomitant]
     Indication: PNEUMONIA
  10. PREGABALIN [Concomitant]
     Indication: PAIN
     Dosage: 75 mg, 1x/day
     Dates: start: 20110725, end: 20110803
  11. ACETAMINOPHEN [Concomitant]
     Indication: PAIN
     Dosage: 2400 mg, 1x/day
     Dates: start: 20110804, end: 20110808

REACTIONS (2)
  - Drug interaction [Recovered/Resolved]
  - Delirium [Recovered/Resolved]
